FAERS Safety Report 7381874-1 (Version None)
Quarter: 2011Q1

REPORT INFORMATION
  Report Type: 
  Country: None (occurrence: None)
  Receive Date: 20110329
  Receipt Date: 20100811
  Transmission Date: 20110831
  Serious: No
  Sender: FDA-Public Use
  Company Number: US-TYCO HEALTHCARE/MALLINCKRODT-T200801126

PATIENT

DRUGS (3)
  1. IMIPRAMINE PAMOATE [Suspect]
     Indication: DEPRESSION
     Dosage: ONE TABLET, QD (QHS)
     Route: 048
     Dates: start: 20080501, end: 20080601
  2. TRAZODONE [Concomitant]
     Indication: DEPRESSION
     Dosage: UNK, QD
     Route: 048
     Dates: start: 20080601
  3. AMLODIPINE BESYLATE [Concomitant]
     Indication: BLOOD PRESSURE
     Dosage: UNK, QD
     Route: 048
     Dates: start: 20080601

REACTIONS (7)
  - PAIN IN EXTREMITY [None]
  - DIZZINESS [None]
  - NAUSEA [None]
  - HYPERHIDROSIS [None]
  - PARAESTHESIA [None]
  - HEADACHE [None]
  - HYPOAESTHESIA [None]
